FAERS Safety Report 4987741-2 (Version None)
Quarter: 2006Q2

REPORT INFORMATION
  Report Type: 
  Country: None (occurrence: None)
  Receive Date: 20060501
  Receipt Date: 20060425
  Transmission Date: 20061013
  Serious: Yes (Death)
  Sender: FDA-Public Use
  Company Number: US-JNJFOC-20060400615

PATIENT
  Sex: Female
  Weight: 58.97 kg

DRUGS (1)
  1. HALDOL [Suspect]
     Indication: DRUG USE FOR UNKNOWN INDICATION
     Dosage: UNSPECIFIED DOSE 2-3 TIMES DAILY
     Route: 042

REACTIONS (5)
  - INTESTINAL OBSTRUCTION [None]
  - MEDICATION ERROR [None]
  - OVARIAN CANCER METASTATIC [None]
  - RESPIRATORY FAILURE [None]
  - WEIGHT INCREASED [None]
